APPROVED DRUG PRODUCT: CHILDREN'S ALLEGRA ALLERGY
Active Ingredient: FEXOFENADINE HYDROCHLORIDE
Strength: 30MG **Federal Register determination that product was not discontinued or withdrawn for safety or effectiveness reasons**
Dosage Form/Route: TABLET;ORAL
Application: N020872 | Product #005
Applicant: CHATTEM INC DBA SANOFI CONSUMER HEALTHCARE
Approved: Jan 24, 2011 | RLD: Yes | RS: No | Type: DISCN